FAERS Safety Report 10558242 (Version 1)
Quarter: 2014Q4

REPORT INFORMATION
  Report Type: Spontaneous
  Country: FR (occurrence: FR)
  Receive Date: 20141031
  Receipt Date: 20141031
  Transmission Date: 20150529
  Serious: Yes (Hospitalization)
  Sender: FDA-Public Use
  Company Number: FR-GLAXOSMITHKLINE-FR2014GSK010807

PATIENT
  Age: 79 Year
  Sex: Female

DRUGS (4)
  1. LEVOTHYROX [Concomitant]
     Active Substance: LEVOTHYROXINE
     Dosage: 75 UNK, U
     Route: 048
  2. REQUIP LP [Suspect]
     Active Substance: ROPINIROLE HYDROCHLORIDE
     Indication: PARKINSON^S DISEASE
     Dosage: 8 MG, U
     Route: 048
  3. MODOPAR LP [Suspect]
     Active Substance: BENSERAZIDE HYDROCHLORIDE\LEVODOPA
     Indication: PARKINSON^S DISEASE
     Dosage: 5 CAPSULES, U
     Route: 048
  4. TRIVASTAL (PIRIBEDIL) [Suspect]
     Active Substance: PIRIBEDIL
     Indication: PARKINSON^S DISEASE
     Dosage: 3 TABLET, U
     Route: 048

REACTIONS (2)
  - Confusional state [Recovered/Resolved]
  - Overdose [Recovered/Resolved]

NARRATIVE: CASE EVENT DATE: 20110303
